FAERS Safety Report 10529945 (Version 1)
Quarter: 2014Q4

REPORT INFORMATION
  Report Type: Spontaneous
  Country: US (occurrence: None)
  Receive Date: 20141020
  Receipt Date: 20141020
  Transmission Date: 20150528
  Serious: Yes (Hospitalization)
  Sender: FDA-Public Use
  Company Number: None

PATIENT
  Age: 60 Year
  Sex: Female
  Weight: 79.38 kg

DRUGS (1)
  1. HALDOL [Suspect]
     Active Substance: HALOPERIDOL
     Indication: DEPRESSION
     Dosage: HALSALPERIDOL, TWICE A MONTH, INTO THE MUSCLE
     Dates: start: 20140901, end: 20141018

REACTIONS (7)
  - Renal disorder [None]
  - Pollakiuria [None]
  - Alopecia [None]
  - Vision blurred [None]
  - Amnesia [None]
  - Arthralgia [None]
  - Skin discolouration [None]

NARRATIVE: CASE EVENT DATE: 20140918
